FAERS Safety Report 8978250 (Version 1)
Quarter: 2012Q4

REPORT INFORMATION
  Report Type: 
  Country: US (occurrence: US)
  Receive Date: 20121221
  Receipt Date: 20121221
  Transmission Date: 20130627
  Serious: Yes (Hospitalization, Other)
  Sender: FDA-Public Use
  Company Number: US-ELI_LILLY_AND_COMPANY-US201212004843

PATIENT
  Sex: Male

DRUGS (7)
  1. ALIMTA [Suspect]
     Indication: NON-SMALL CELL LUNG CANCER
     Dosage: UNK
     Dates: end: 20090728
  2. ALIMTA [Suspect]
     Dosage: maintenance
  3. CARBOPLATIN [Concomitant]
     Indication: NON-SMALL CELL LUNG CANCER
  4. MUCOMYST [Concomitant]
  5. FUROSEMIDE [Concomitant]
  6. INSULIN [Concomitant]
  7. ZOMETA [Concomitant]
     Indication: METASTASES TO BONE

REACTIONS (3)
  - Cardiac tamponade [Unknown]
  - Renal failure acute [Recovering/Resolving]
  - Malignant neoplasm progression [Recovering/Resolving]
